FAERS Safety Report 5109441-0 (Version None)
Quarter: 2006Q3

REPORT INFORMATION
  Report Type: 
  Country: None (occurrence: None)
  Receive Date: 20060918
  Receipt Date: 20060830
  Transmission Date: 20061208
  Serious: Yes (Hospitalization)
  Sender: FDA-Public Use
  Company Number: DE200608006748

PATIENT
  Age: 54 Year
  Sex: Female
  Weight: 62 kg

DRUGS (6)
  1. CYMBALTA [Suspect]
     Indication: DEPRESSION
     Dosage: 60 MG, DAILY (1/D); ORAL
     Route: 048
     Dates: start: 20060825, end: 20060825
  2. BELOC-ZOC MITE (METOPROLOL SUCCINATE) [Concomitant]
  3. ARCOXIA [Concomitant]
  4. TROMCARDIN (ASPARTATE POTASSIUM, MAGNESIUM ASPARTATE) [Concomitant]
  5. MAGNESIUM CARBONATE (MAGNESIUM CARBONATE WITH MAGNESIUM OXIDE UNKNOWN [Concomitant]
  6. POTASSIUM CHLORIDE (POTASSIUM CHLORIDE UNKNOWN FORMULATION) [Concomitant]

REACTIONS (3)
  - COMA [None]
  - DIARRHOEA [None]
  - VOMITING [None]
